FAERS Safety Report 16458170 (Version 2)
Quarter: 2019Q3

REPORT INFORMATION
  Report Type: Spontaneous
  Country: US (occurrence: US)
  Receive Date: 20190620
  Receipt Date: 20190813
  Transmission Date: 20191004
  Serious: No
  Sender: FDA-Public Use
  Company Number: US-009507513-1906USA006177

PATIENT
  Age: 21 Year
  Sex: Female
  Weight: 39 kg

DRUGS (26)
  1. VENLAFAXINE HYDROCHLORIDE. [Concomitant]
     Active Substance: VENLAFAXINE HYDROCHLORIDE
     Dosage: 225 MILLIGRAM, DAILY
     Route: 048
  2. VITAMIN E [Concomitant]
     Active Substance: .ALPHA.-TOCOPHEROL
     Dosage: 400 UNITS 2 TIMES A DAY
     Route: 048
  3. ZYRTEC [Concomitant]
     Active Substance: CETIRIZINE HYDROCHLORIDE
     Dosage: 10 MG DAILY
     Route: 048
  4. ATIVAN [Concomitant]
     Active Substance: LORAZEPAM
     Indication: ANXIETY
     Dosage: 1 MILLIGRAM, DAILY AS NEEDED
     Route: 048
  5. VOLTAREN [Concomitant]
     Active Substance: DICLOFENAC SODIUM
     Dosage: 4 TIMES A DAY AS NEEDED
     Route: 061
  6. ZOFRAN [Concomitant]
     Active Substance: ONDANSETRON HYDROCHLORIDE
     Indication: NAUSEA
     Dosage: 8 MG, EVERY 8 HOURS
     Route: 048
  7. COMPAZINE [Concomitant]
     Active Substance: PROCHLORPERAZINE MALEATE
     Dosage: 5 MG, 4 TIMES A DAY
     Route: 048
  8. PROAIR HFA [Concomitant]
     Active Substance: ALBUTEROL SULFATE
     Indication: WHEEZING
     Dosage: 2 PUFFS (180 MCG TOTALY), EVERY 4 HOURS AS NEEDED
     Route: 055
  9. MARINOL [Concomitant]
     Active Substance: DRONABINOL
     Dosage: 2.5 MG 2 TIMES A DAY BEFORE MEALS
     Route: 048
  10. PROTONIX [Concomitant]
     Active Substance: PANTOPRAZOLE SODIUM
     Dosage: 40 MG DAILY
     Route: 048
  11. RETIN-A [Concomitant]
     Active Substance: TRETINOIN
     Dosage: UNK, AT BED TIME
     Route: 061
  12. ZINC ACETATE [Suspect]
     Active Substance: ZINC ACETATE
     Dosage: 220 MG 3 TIMES A DAY
     Route: 048
  13. CATAPRES [Concomitant]
     Active Substance: CLONIDINE HYDROCHLORIDE
     Dosage: 0.2 MILLIGRAM, PRN
     Route: 048
  14. NEURONTIN [Concomitant]
     Active Substance: GABAPENTIN
     Dosage: 900 MG 3 TIMES A DAY
     Route: 048
  15. ZOFRAN [Concomitant]
     Active Substance: ONDANSETRON HYDROCHLORIDE
     Indication: VOMITING
  16. CHOLECALCIFEROL [Concomitant]
     Active Substance: CHOLECALCIFEROL
     Dosage: 2000 UNITS DAILY
     Route: 048
  17. NEXPLANON [Suspect]
     Active Substance: ETONOGESTREL
     Dosage: 68 MILLIGRAM/ONE
     Route: 059
     Dates: start: 20181127, end: 201812
  18. MOTRIN [Concomitant]
     Active Substance: IBUPROFEN
     Dosage: 600 MG, EVERY 6 HOURS AS NEEDED
     Route: 048
  19. LAMICTAL [Concomitant]
     Active Substance: LAMOTRIGINE
     Dosage: 100 MILLIGRAM,2 TIMES A DAY
     Route: 048
  20. CONCERTA [Concomitant]
     Active Substance: METHYLPHENIDATE HYDROCHLORIDE
     Dosage: 25 MG TWO TIMES A DAY
     Route: 048
  21. PAMELOR [Concomitant]
     Active Substance: NORTRIPTYLINE HYDROCHLORIDE
     Dosage: 10 MG NIGHTLY
     Route: 048
  22. ZANAFLEX [Concomitant]
     Active Substance: TIZANIDINE HYDROCHLORIDE
     Dosage: 2 MILLIGRAM, BID
     Route: 048
  23. VENTOLIN HFA [Concomitant]
     Active Substance: ALBUTEROL SULFATE
     Dosage: 2 PUFFS (180 MCG TOTAL) EVERY 4 HOURS AS NEEDED
  24. FLONASE [Concomitant]
     Active Substance: FLUTICASONE PROPIONATE
     Dosage: UNK
     Route: 045
  25. METADATE [Concomitant]
     Active Substance: METHYLPHENIDATE HYDROCHLORIDE
     Dosage: UNK
     Route: 048
  26. ZOLOFT [Concomitant]
     Active Substance: SERTRALINE HYDROCHLORIDE
     Dosage: 200 MG DAILY
     Route: 048

REACTIONS (3)
  - Complication associated with device [Unknown]
  - No adverse event [Unknown]
  - Device expulsion [Unknown]

NARRATIVE: CASE EVENT DATE: 201812
